FAERS Safety Report 8121540-8 (Version None)
Quarter: 2012Q1

REPORT INFORMATION
  Report Type: 
  Country: None (occurrence: None)
  Receive Date: 20120208
  Receipt Date: 20120124
  Transmission Date: 20120608
  Serious: Yes (Other)
  Sender: FDA-Public Use
  Company Number: MX-PFIZER INC-2012033039

PATIENT
  Age: 82 Year
  Sex: Female

DRUGS (3)
  1. AMARYL [Suspect]
     Indication: TYPE 2 DIABETES MELLITUS
     Dosage: 1 DF, 1X/DAY
     Route: 048
     Dates: start: 20110101
  2. TRENTAL [Concomitant]
     Dosage: UNK
     Dates: start: 20120101
  3. RAMIPRIL [Suspect]
     Indication: HYPERTENSION
     Dosage: 5 MG, 1X/DAY
     Route: 048
     Dates: start: 20110101

REACTIONS (3)
  - PHARYNGITIS BACTERIAL [None]
  - OSTEOPOROSIS [None]
  - HYPERGLYCAEMIA [None]
